FAERS Safety Report 5399536-9 (Version None)
Quarter: 2007Q3

REPORT INFORMATION
  Report Type: 
  Country: None (occurrence: None)
  Receive Date: 20070727
  Receipt Date: 20070720
  Transmission Date: 20080115
  Serious: Yes (Other)
  Sender: FDA-Public Use
  Company Number: BR-PFIZER INC-2006153700

PATIENT
  Sex: Female

DRUGS (5)
  1. VIAGRA [Suspect]
     Indication: NERVOUS SYSTEM DISORDER
     Route: 048
  2. METICORTEN [Concomitant]
     Route: 048
  3. RIVOTRIL [Concomitant]
     Route: 048
  4. TRYPTANOL [Concomitant]
     Route: 048
  5. METFORMIN HCL [Concomitant]
     Route: 048

REACTIONS (4)
  - BONE PAIN [None]
  - NERVOUS SYSTEM DISORDER [None]
  - PAIN IN EXTREMITY [None]
  - RENAL PAIN [None]
